FAERS Safety Report 5620778-9 (Version None)
Quarter: 2008Q1

REPORT INFORMATION
  Report Type: 
  Country: None (occurrence: None)
  Receive Date: 20080208
  Receipt Date: 20080128
  Transmission Date: 20080703
  Serious: Yes (Death, Hospitalization, Other)
  Sender: FDA-Public Use
  Company Number: FR-PFIZER INC-2007095542

PATIENT
  Sex: Male
  Weight: 101 kg

DRUGS (5)
  1. CHANTIX [Suspect]
     Route: 048
     Dates: start: 20071001, end: 20071103
  2. INDAPAMIDE [Concomitant]
  3. ALL OTHER THERAPEUTIC PRODUCTS [Concomitant]
     Dates: start: 20070601
  4. IPERTEN [Concomitant]
     Route: 048
  5. BIPRETERAX [Concomitant]
     Route: 048
     Dates: start: 20070601

REACTIONS (6)
  - ANGINA UNSTABLE [None]
  - ARTHRALGIA [None]
  - CHEST PAIN [None]
  - MALAISE [None]
  - MYOCARDIAL INFARCTION [None]
  - VENTRICULAR TACHYCARDIA [None]
